FAERS Safety Report 9228621 (Version 2)
Quarter: 2013Q2

REPORT INFORMATION
  Report Type: Report from Study
  Country: DE (occurrence: DE)
  Receive Date: 20130412
  Receipt Date: 20130514
  Transmission Date: 20140414
  Serious: Yes (Other)
  Sender: FDA-Public Use
  Company Number: DE-ROCHE-1213755

PATIENT
  Age: 78 Year
  Sex: Male

DRUGS (4)
  1. ALTEPLASE [Suspect]
     Indication: RETINAL HAEMORRHAGE
     Route: 050
  2. BEVACIZUMAB [Suspect]
     Indication: RETINAL HAEMORRHAGE
     Dosage: DOSE RATE OF 1.25 MG
     Route: 050
  3. SULFUR HEXAFLUORIDE [Suspect]
     Indication: RETINAL HAEMORRHAGE
     Route: 065
  4. CHLORAMPHENICOL [Concomitant]
     Route: 065

REACTIONS (1)
  - Intraocular pressure increased [Unknown]
